FAERS Safety Report 14094792 (Version 1)
Quarter: 2017Q4

REPORT INFORMATION
  Report Type: Spontaneous
  Country: IN (occurrence: IN)
  Receive Date: 20171016
  Receipt Date: 20171016
  Transmission Date: 20180321
  Serious: Yes (Hospitalization)
  Sender: FDA-Public Use
  Company Number: IN-SA-2017SA196726

PATIENT
  Age: 39 Year
  Sex: Male

DRUGS (3)
  1. RIFAMPICIN [Suspect]
     Active Substance: RIFAMPIN
     Indication: PULMONARY TUBERCULOSIS
     Route: 065
  2. ISONIAZID. [Suspect]
     Active Substance: ISONIAZID
     Indication: PULMONARY TUBERCULOSIS
     Route: 065
  3. PYRAZINAMIDE. [Suspect]
     Active Substance: PYRAZINAMIDE
     Indication: PULMONARY TUBERCULOSIS
     Route: 065

REACTIONS (10)
  - Hepatitis acute [Recovered/Resolved]
  - Fatigue [Recovered/Resolved]
  - International normalised ratio increased [Recovered/Resolved]
  - Decreased appetite [Recovered/Resolved]
  - Hyperbilirubinaemia [Recovered/Resolved]
  - Encephalopathy [Unknown]
  - Aspartate aminotransferase increased [Recovered/Resolved]
  - Jaundice [Recovered/Resolved]
  - Alanine aminotransferase increased [Recovered/Resolved]
  - Coagulopathy [Unknown]
